APPROVED DRUG PRODUCT: LOPINAVIR AND RITONAVIR
Active Ingredient: LOPINAVIR; RITONAVIR
Strength: 100MG;25MG
Dosage Form/Route: TABLET;ORAL
Application: A213857 | Product #001 | TE Code: AB
Applicant: LAURUS LABS LTD
Approved: Mar 21, 2022 | RLD: No | RS: No | Type: RX